FAERS Safety Report 8461449 (Version 5)
Quarter: 2014Q1

REPORT INFORMATION
  Report Type: Spontaneous
  Country: US (occurrence: US)
  Receive Date: 20120315
  Receipt Date: 20140328
  Transmission Date: 20141002
  Serious: Yes (Hospitalization)
  Sender: FDA-Public Use
  Company Number: US-B.I. PHARMACEUTICALS,INC./RIDGEFIELD-2012-BP-04793BP

PATIENT
  Age: 62 Year
  Sex: Male
  Weight: 112.04 kg

DRUGS (20)
  1. PRADAXA [Suspect]
     Indication: ANTICOAGULANT THERAPY
     Dosage: 300 MG
     Route: 065
     Dates: start: 20110326, end: 20110331
  2. PRADAXA [Suspect]
     Indication: ATRIAL FIBRILLATION
  3. NORVASC [Concomitant]
     Dosage: 10 MG
     Route: 048
     Dates: start: 2002, end: 2012
  4. DEMADEX [Concomitant]
     Dosage: 100 MG
     Route: 048
     Dates: start: 2002, end: 2012
  5. KLOR-CON [Concomitant]
     Dosage: 20 MEQ
     Route: 048
     Dates: start: 2002, end: 2012
  6. CRESTOR [Concomitant]
     Dosage: 10 MG
     Route: 048
     Dates: start: 2004, end: 2012
  7. LORAZEPAM [Concomitant]
     Indication: ANXIETY
     Dosage: 2 MG
     Route: 048
     Dates: start: 2002, end: 2012
  8. NITROGLYCERIN [Concomitant]
     Route: 060
     Dates: start: 2002, end: 2012
  9. ASPIRIN [Concomitant]
     Dosage: 81 MG
     Route: 048
     Dates: start: 2002, end: 2012
  10. ATENOLOL [Concomitant]
     Dosage: 50 MG
     Route: 048
     Dates: start: 2002, end: 2012
  11. AVAPRO [Concomitant]
     Dosage: 150 MG
     Route: 048
  12. DILAUDID [Concomitant]
     Indication: PAIN
     Route: 065
  13. METFORMIN [Concomitant]
     Dosage: 2000 MG
     Route: 065
  14. MOXIFLOXACIN [Concomitant]
     Dosage: 400 MG
     Route: 048
  15. MULTIVITAMIN [Concomitant]
     Dosage: 10 MG
     Route: 065
  16. NIACIN [Concomitant]
     Dosage: 500 MG
     Route: 048
  17. PLAVIX [Concomitant]
     Dosage: 75 MG
     Route: 048
     Dates: start: 2007, end: 2012
  18. VICTOZA [Concomitant]
     Dosage: 1.2 MG
     Route: 048
  19. SIMVASTATIN [Concomitant]
     Dosage: 40 MG
     Route: 065
  20. COUMADIN [Concomitant]
     Route: 065
     Dates: end: 20110326

REACTIONS (4)
  - Upper gastrointestinal haemorrhage [Recovered/Resolved]
  - Coagulopathy [Unknown]
  - Pain [Unknown]
  - Emotional distress [Unknown]
